FAERS Safety Report 5915064-3 (Version None)
Quarter: 2008Q4

REPORT INFORMATION
  Report Type: 
  Country: None (occurrence: None)
  Receive Date: 20081010
  Receipt Date: 20081006
  Transmission Date: 20090506
  Serious: Yes (Disabling)
  Sender: FDA-Public Use
  Company Number: A0750622A

PATIENT
  Age: 63 Year
  Sex: Female

DRUGS (8)
  1. AVANDIA [Suspect]
     Dosage: 8MG PER DAY
     Route: 048
  2. GLYBURIDE [Concomitant]
     Dosage: 20MG PER DAY
     Route: 048
  3. METFORMIN HCL [Concomitant]
     Dosage: 1000MG TWICE PER DAY
     Route: 048
  4. ABILIFY [Concomitant]
  5. SYNTHROID [Concomitant]
  6. KLONOPIN [Concomitant]
  7. OXYBUTYNIN [Concomitant]
     Dosage: 10MG IN THE MORNING
     Route: 048
  8. LITHIUM [Concomitant]

REACTIONS (2)
  - BLOOD GLUCOSE DECREASED [None]
  - CONFUSIONAL STATE [None]
